FAERS Safety Report 4338465-6 (Version None)
Quarter: 2004Q2

REPORT INFORMATION
  Report Type: 
  Country: None (occurrence: None)
  Receive Date: 20040409
  Receipt Date: 20040325
  Transmission Date: 20050107
  Serious: Yes (Other)
  Sender: FDA-Public Use
  Company Number: HQWYE606305MAR04

PATIENT
  Age: 75 Year
  Sex: Female

DRUGS (6)
  1. SERAX [Suspect]
     Dosage: 10 MG (OVERDOSE AMOUNT)
     Route: 048
  2. CLOZAPINE [Suspect]
     Dosage: 100 MG (OVERDOSE AMOUNT)
     Route: 048
  3. NORFLOXACIN [Suspect]
     Dosage: 400 MG (OVERDOSE AMUNT)
     Route: 048
  4. PREDNISOLONE [Concomitant]
  5. CARBAMAZEPINE [Concomitant]
  6. ZUCLOPENTHIXOL (ZUCLOPENTHIXOL) [Concomitant]

REACTIONS (10)
  - ACCIDENTAL OVERDOSE [None]
  - BLOOD PRESSURE DECREASED [None]
  - BLOOD PRESSURE SYSTOLIC INCREASED [None]
  - COMA [None]
  - DRUG EFFECT INCREASED [None]
  - FEELING COLD [None]
  - HYDROCEPHALUS [None]
  - LEUKOARAIOSIS [None]
  - LOSS OF CONSCIOUSNESS [None]
  - MEDICATION ERROR [None]
